FAERS Safety Report 8476818-5 (Version None)
Quarter: 2012Q2

REPORT INFORMATION
  Report Type: 
  Country: None (occurrence: None)
  Receive Date: 20120629
  Receipt Date: 20120615
  Transmission Date: 20120825
  Serious: Yes (Death, Hospitalization)
  Sender: FDA-Public Use
  Company Number: DK-RANBAXY-2009RR-22977

PATIENT
  Sex: Male
  Weight: 80 kg

DRUGS (3)
  1. DICLOXACILLIN [Concomitant]
     Indication: PRODUCT USED FOR UNKNOWN INDICATION
     Dosage: 500 MG, UNK
     Route: 048
     Dates: start: 20090201
  2. SIMVASTATIN [Suspect]
     Indication: PROPHYLAXIS
     Dosage: 40 MG, UNK
     Route: 065
     Dates: start: 20090201, end: 20090213
  3. ASPIRIN AND DIPYRIDAMOLE [Suspect]
     Indication: THROMBOSIS PROPHYLAXIS
     Dosage: UNK
     Route: 048
     Dates: start: 20090201

REACTIONS (2)
  - GOUTY ARTHRITIS [None]
  - MYALGIA [None]
